FAERS Safety Report 8592879-7 (Version None)
Quarter: 2012Q3

REPORT INFORMATION
  Report Type: 
  Country: None (occurrence: None)
  Receive Date: 20120814
  Receipt Date: 20120808
  Transmission Date: 20120928
  Serious: Yes (Hospitalization)
  Sender: FDA-Public Use
  Company Number: US-ROCHE-1058753

PATIENT
  Sex: Female

DRUGS (5)
  1. FLUTICASONE PROPIONATE [Concomitant]
  2. VENTOLIN [Concomitant]
  3. TELAPREVIR [Suspect]
     Indication: HEPATITIS C
     Dates: start: 20120309, end: 20120525
  4. PEGASYS [Suspect]
     Indication: HEPATITIS C
     Route: 058
     Dates: start: 20120309
  5. COPEGUS [Suspect]
     Indication: HEPATITIS C
     Dosage: DAILY DIVIDED DOSE
     Dates: start: 20120309

REACTIONS (8)
  - ASTHMA [None]
  - DYSPNOEA [None]
  - FATIGUE [None]
  - DYSPNOEA EXERTIONAL [None]
  - FEELING ABNORMAL [None]
  - NAUSEA [None]
  - DECREASED APPETITE [None]
  - WEIGHT INCREASED [None]
